FAERS Safety Report 6672436-X (Version None)
Quarter: 2010Q2

REPORT INFORMATION
  Report Type: 
  Country: None (occurrence: None)
  Receive Date: 20100408
  Receipt Date: 20100331
  Transmission Date: 20101027
  Serious: Yes (Hospitalization)
  Sender: FDA-Public Use
  Company Number: FR-JNJFOC-20100401061

PATIENT
  Age: 32 Year
  Sex: Male

DRUGS (3)
  1. REMICADE [Suspect]
     Indication: DRUG USE FOR UNKNOWN INDICATION
     Dosage: RECEIVED 8 INFUSIONS
     Route: 042
  2. BI-PROFENID [Concomitant]
  3. LANZOPRAZOLE [Concomitant]

REACTIONS (4)
  - INFUSION RELATED REACTION [None]
  - PAIN IN EXTREMITY [None]
  - SENSORIMOTOR DISORDER [None]
  - URTICARIA [None]
